FAERS Safety Report 24327675 (Version 2)
Quarter: 2024Q3

REPORT INFORMATION
  Report Type: Spontaneous
  Country: JP (occurrence: JP)
  Receive Date: 20240917
  Receipt Date: 20240918
  Transmission Date: 20241017
  Serious: Yes (Hospitalization, Other)
  Sender: PFIZER
  Company Number: JP-PFIZER INC-PV202400119614

PATIENT
  Age: 62 Year
  Sex: Female

DRUGS (2)
  1. BEVACIZUMAB [Suspect]
     Active Substance: BEVACIZUMAB
     Indication: Tubular breast carcinoma
     Dosage: 400 MG/BODY DAYS 1 AND 15(REPEATED ADMINISTRATION OVER 28 DAYS AS ONE COURSE)
     Dates: start: 201204
  2. PACLITAXEL [Concomitant]
     Active Substance: PACLITAXEL
     Indication: Tubular breast carcinoma
     Dosage: 110 MG/BODY DAYS 1, 8,AND 15(REPEATED ADMINISTRATION OVER 28 DAYS AS ONE COURSE)
     Dates: start: 201204

REACTIONS (1)
  - Pneumothorax [Recovered/Resolved]

NARRATIVE: CASE EVENT DATE: 20121201
